FAERS Safety Report 19933027 (Version 2)
Quarter: 2022Q2

REPORT INFORMATION
  Report Type: Other
  Country: US (occurrence: None)
  Receive Date: 20211008
  Receipt Date: 20220422
  Transmission Date: 20220721
  Serious: Yes (Hospitalization)
  Sender: FDA-Public Use
  Company Number: US-ROCHE-2924013

PATIENT
  Age: 60 Year
  Sex: Male
  Weight: 104.42 kg

DRUGS (3)
  1. OCREVUS [Suspect]
     Active Substance: OCRELIZUMAB
     Indication: Relapsing-remitting multiple sclerosis
     Dosage: POSSIBLY 300 OR 600 MG?LAST DATE OF TREATMENT: 10/JUL/2020, ANTICIPATED DOT: 08/JAN/2021
     Route: 042
     Dates: start: 201711
  2. OCREVUS [Suspect]
     Active Substance: OCRELIZUMAB
     Indication: Multiple sclerosis
  3. PFIZER-BIONTECH COVID-19 VACCINE [Suspect]
     Active Substance: TOZINAMERAN
     Indication: Product used for unknown indication
     Dosage: SECOND COVID VACCINE ON 14/APR/2021.
     Route: 065
     Dates: start: 20210323

REACTIONS (6)
  - COVID-19 [Unknown]
  - Movement disorder [Unknown]
  - Immunisation reaction [Recovered/Resolved]
  - SARS-CoV-2 antibody test negative [Unknown]
  - Paraesthesia [Not Recovered/Not Resolved]
  - Hypoaesthesia [Not Recovered/Not Resolved]

NARRATIVE: CASE EVENT DATE: 20210810
